FAERS Safety Report 7393747-9 (Version None)
Quarter: 2011Q2

REPORT INFORMATION
  Report Type: 
  Country: None (occurrence: None)
  Receive Date: 20110405
  Receipt Date: 20110331
  Transmission Date: 20111010
  Serious: Yes (Death)
  Sender: FDA-Public Use
  Company Number: US-ASTELLAS-2011US000543

PATIENT
  Sex: Male

DRUGS (1)
  1. AMBISOME [Suspect]
     Indication: PNEUMONIA
     Dosage: 260 MG, UNKNOWN/D
     Route: 065
     Dates: start: 20110125, end: 20110126

REACTIONS (1)
  - ACUTE RESPIRATORY FAILURE [None]
